FAERS Safety Report 7123986-3 (Version None)
Quarter: 2010Q4

REPORT INFORMATION
  Report Type: 
  Country: None (occurrence: None)
  Receive Date: 20101126
  Receipt Date: 20101116
  Transmission Date: 20110411
  Serious: No
  Sender: FDA-Public Use
  Company Number: US-PFIZER INC-2010154215

PATIENT
  Sex: Female
  Weight: 90.703 kg

DRUGS (21)
  1. PRISTIQ [Suspect]
     Indication: PAIN
     Dosage: 50 MG, 1X/DAY
     Dates: start: 20100101
  2. FISH OIL [Concomitant]
     Dosage: UNK
  3. BLACK COHOSH [Concomitant]
     Dosage: UNK
  4. ACETYLSALICYLIC ACID [Concomitant]
     Dosage: UNK
  5. CALCIUM [Concomitant]
     Dosage: UNK
  6. LUTEIN [Concomitant]
     Dosage: UNK
  7. VITAMIN D [Concomitant]
     Dosage: UNK
  8. MULTI-VITAMINS [Concomitant]
     Dosage: UNK
  9. CRESTOR [Concomitant]
     Dosage: 20 MG, UNK
  10. RANITIDINE [Concomitant]
     Dosage: 300 MG, UNK
  11. METOPROLOL TARTRATE [Concomitant]
     Dosage: 50 MG, UNK
  12. PRINZIDE [Concomitant]
     Dosage: 20/12.5 MG
  13. METFORMIN [Concomitant]
     Dosage: 500 MG, UNK
  14. PROVERA [Concomitant]
     Dosage: UNK
  15. GLIMEPIRIDE [Concomitant]
     Dosage: 2 MG, 2X/DAY
  16. OMEPRAZOLE [Concomitant]
     Dosage: UNK
  17. OXYCODONE HCL [Concomitant]
     Indication: PAIN
     Dosage: FREQUENCY: AS NEEDED,
  18. VICODIN [Concomitant]
     Indication: PAIN
     Dosage: FREQUENCY: AS NEEDED,
  19. DILAUDID [Concomitant]
     Indication: PAIN
     Dosage: FREQUENCY: AS NEEDED,
  20. PERCOCET [Concomitant]
     Indication: PAIN
     Dosage: FREQUENCY: AS NEEDED,
  21. MORPHINE [Concomitant]
     Indication: PAIN
     Dosage: UNKNOWN

REACTIONS (1)
  - FATIGUE [None]
